FAERS Safety Report 25950197 (Version 1)
Quarter: 2025Q4

REPORT INFORMATION
  Report Type: Spontaneous
  Country: EU (occurrence: EU)
  Receive Date: 20251022
  Receipt Date: 20251022
  Transmission Date: 20260117
  Serious: Yes (Other)
  Sender: TEVA
  Company Number: None

PATIENT
  Age: 78 Year
  Sex: Male

DRUGS (14)
  1. OXYCODONE [Suspect]
     Active Substance: OXYCODONE
     Indication: Pain
     Dosage: 4 TIMES DAILY, BRAND NAME NOT SPECIFIED
     Route: 048
     Dates: start: 20250924
  2. OXYCODONE [Suspect]
     Active Substance: OXYCODONE
     Indication: Pain
     Dosage: 1D2T 5 MG
     Route: 065
  3. CHOLECALCIFEROL [Concomitant]
     Active Substance: CHOLECALCIFEROL
     Indication: Product used for unknown indication
     Dosage: 5600 UNITS, 5600IE / BRAND NAME NOT SPECIFIED
     Route: 048
  4. POLYETHYLENE GLYCOLS [Concomitant]
     Active Substance: POLYETHYLENE GLYCOLS
     Indication: Product used for unknown indication
     Dosage: POWDER FOR DRINK, SALTS PDR V DRINK (MOVIC/MOLAX/GEN CITR) / BRAND NAME NOT SPECIFIED
     Route: 048
  5. CYANOCOBALAMIN\PYRIDOXINE HYDROCHLORIDE\RIBOFLAVIN\SODIUM PANTOTHENATE [Concomitant]
     Active Substance: CYANOCOBALAMIN\PYRIDOXINE HYDROCHLORIDE\RIBOFLAVIN\SODIUM PANTOTHENATE\THIAMINE HYDROCHLORIDE\VITAMI
     Indication: Product used for unknown indication
     Dosage: VITAMINE B COMPLEX FORTE/ BRAND NAME NOT SPECIFIED
     Route: 048
  6. HYDROXYZINE [Suspect]
     Active Substance: HYDROXYZINE HYDROCHLORIDE
     Indication: Pruritus
     Dosage: 1DD, BRAND NAME NOT SPECIFIED, HYDROXYZINE DIHYDROCHLORIDE
     Route: 065
     Dates: start: 20250915, end: 20250929
  7. THIAMINE [Concomitant]
     Active Substance: THIAMINE
     Indication: Product used for unknown indication
     Dosage: BRAND NAME NOT SPECIFIED
     Route: 048
  8. TIZANIDINE [Suspect]
     Active Substance: TIZANIDINE
     Indication: Musculoskeletal stiffness
     Dosage: DOSE DECREASED ON 29-9-2025
     Route: 048
     Dates: start: 20250824
  9. TIZANIDINE [Suspect]
     Active Substance: TIZANIDINE
     Indication: Musculoskeletal stiffness
     Dosage: 6 MG 3 TIMES A DAY; DOSE DECREASED ON 29-9-2025
     Route: 065
     Dates: start: 20250918
  10. ATORVASTATIN [Concomitant]
     Active Substance: ATORVASTATIN
     Indication: Product used for unknown indication
     Dosage: BRAND NAME NOT SPECIFIED
     Route: 048
  11. LORAZEPAM [Suspect]
     Active Substance: LORAZEPAM
     Indication: Anxiety
     Dosage: ZN 2 TIMES A DAY AT NIGHT FOR RESTLESSNESS/ANXIETY/PANIC, BRAND NAME NOT SPECIFIED
     Route: 048
     Dates: start: 20250506, end: 20250929
  12. TOLPERMYO [Concomitant]
     Indication: Product used for unknown indication
     Route: 048
  13. ACETAMINOPHEN [Concomitant]
     Active Substance: ACETAMINOPHEN
     Indication: Product used for unknown indication
     Dosage: BRAND NAME NOT SPECIFIED
     Route: 048
  14. CLOPIDOGREL [Concomitant]
     Active Substance: CLOPIDOGREL BISULFATE
     Indication: Product used for unknown indication
     Route: 048

REACTIONS (2)
  - Apnoea [Recovered/Resolved]
  - Depressed level of consciousness [Recovered/Resolved]
